FAERS Safety Report 23852383 (Version 1)
Quarter: 2024Q2

REPORT INFORMATION
  Report Type: Spontaneous
  Country: US (occurrence: None)
  Receive Date: 20240513
  Receipt Date: 20240513
  Transmission Date: 20240716
  Serious: Yes (Hospitalization)
  Sender: FDA-Public Use
  Company Number: None

PATIENT
  Age: 57 Year
  Sex: Female
  Weight: 88.65 kg

DRUGS (5)
  1. WEGOVY [Suspect]
     Active Substance: SEMAGLUTIDE
     Indication: Weight decreased
     Dosage: 1 INJECTION OTHER SUBCUTANEOUS?
     Route: 058
  2. SPIRONOLACTONE [Concomitant]
     Active Substance: SPIRONOLACTONE
  3. biote [Concomitant]
  4. liquid mv [Concomitant]
  5. probiotics [Concomitant]

REACTIONS (6)
  - Nausea [None]
  - Hiccups [None]
  - Back pain [None]
  - Gastrooesophageal reflux disease [None]
  - Pancreatitis [None]
  - Abdominal pain [None]

NARRATIVE: CASE EVENT DATE: 20240510
